FAERS Safety Report 5165574-4 (Version None)
Quarter: 2006Q4

REPORT INFORMATION
  Report Type: 
  Country: None (occurrence: None)
  Receive Date: 20061206
  Receipt Date: 20001121
  Transmission Date: 20070319
  Serious: Yes (Hospitalization)
  Sender: FDA-Public Use
  Company Number: FR-GLAXOSMITHKLINE-B0092751A

PATIENT
  Sex: Male
  Weight: 2.7 kg

DRUGS (11)
  1. ZIDOVUDINE [Suspect]
     Indication: ANTIVIRAL PROPHYLAXIS
     Route: 048
     Dates: start: 19950810
  2. RETROVIR [Suspect]
     Indication: HIV INFECTION
     Route: 048
  3. ZIDOVUDINE [Suspect]
     Indication: HIV INFECTION
     Route: 042
     Dates: start: 19950810, end: 19950810
  4. PROGESTERONE [Concomitant]
  5. SPASFON [Concomitant]
  6. DICLOFENAC SODIUM [Concomitant]
  7. VISCERALGINE [Concomitant]
  8. PRIMPERAN TAB [Concomitant]
  9. FLUOR [Concomitant]
  10. IRON [Concomitant]
  11. VITAMINS [Concomitant]

REACTIONS (7)
  - ANAEMIA MACROCYTIC [None]
  - CONVULSION [None]
  - DEVELOPMENTAL DELAY [None]
  - MALAISE [None]
  - NEUTROPENIA [None]
  - SPEECH DISORDER DEVELOPMENTAL [None]
  - VOMITING [None]
